FAERS Safety Report 6703740-4 (Version None)
Quarter: 2010Q2

REPORT INFORMATION
  Report Type: 
  Country: None (occurrence: None)
  Receive Date: 20100430
  Receipt Date: 20090617
  Transmission Date: 20101027
  Serious: No
  Sender: FDA-Public Use
  Company Number: US-BAUSCH-2009BL003072

PATIENT
  Age: 54 Year
  Sex: Female

DRUGS (2)
  1. IPRATROPIUM BROMIDE [Suspect]
     Indication: SINUSITIS
     Route: 045
     Dates: start: 20090602, end: 20090602
  2. FIORINAL W/CODEINE [Concomitant]
     Indication: MIGRAINE
     Route: 048

REACTIONS (6)
  - CORNEAL ABRASION [None]
  - EYE PAIN [None]
  - HALO VISION [None]
  - HEADACHE [None]
  - VISION BLURRED [None]
  - VISUAL ACUITY REDUCED [None]
